FAERS Safety Report 25863847 (Version 1)
Quarter: 2025Q3

REPORT INFORMATION
  Report Type: Spontaneous
  Country: US (occurrence: US)
  Receive Date: 20250930
  Receipt Date: 20250930
  Transmission Date: 20251021
  Serious: No
  Sender: SECURA BIO
  Company Number: US-SECURA BIO, INC.-2024-SECUR-US000104

PATIENT
  Sex: Female

DRUGS (1)
  1. COPIKTRA [Suspect]
     Active Substance: DUVELISIB
     Indication: Follicular lymphoma stage II
     Dosage: 25 MG, BID
     Route: 048
     Dates: start: 202212

REACTIONS (3)
  - Nausea [Unknown]
  - Vomiting [Unknown]
  - Pyrexia [Not Recovered/Not Resolved]

NARRATIVE: CASE EVENT DATE: 20240101
